FAERS Safety Report 4943626-9 (Version None)
Quarter: 2006Q1

REPORT INFORMATION
  Report Type: 
  Country: None (occurrence: None)
  Receive Date: 20060310
  Receipt Date: 20060228
  Transmission Date: 20060701
  Serious: Yes (Other)
  Sender: FDA-Public Use
  Company Number: B0413805A

PATIENT
  Age: 13 Year
  Sex: Female

DRUGS (3)
  1. ADVAIR DISKUS 100/50 [Suspect]
     Indication: ASTHMA
     Dosage: AT NIGHT/INHALED
     Route: 055
     Dates: end: 20060201
  2. FLUTICASONE PROPIONATE [Concomitant]
  3. LEVOCETIRIZINE HCL [Concomitant]

REACTIONS (9)
  - ACNE [None]
  - ANAEMIA [None]
  - ARTHRALGIA [None]
  - DRUG EFFECT DECREASED [None]
  - FATIGUE [None]
  - JOINT SWELLING [None]
  - MYALGIA [None]
  - PYREXIA [None]
  - RED BLOOD CELL SEDIMENTATION RATE INCREASED [None]
